FAERS Safety Report 15608849 (Version 5)
Quarter: 2019Q2

REPORT INFORMATION
  Report Type: Report from Study
  Country: US (occurrence: US)
  Receive Date: 20181112
  Receipt Date: 20190401
  Transmission Date: 20190711
  Serious: No
  Sender: FDA-Public Use
  Company Number: US-SA-2018SA310555

PATIENT
  Age: 53 Year
  Sex: Female

DRUGS (2)
  1. DUPILUMAB [Suspect]
     Active Substance: DUPILUMAB
     Dosage: 300 MG, QOW
     Route: 058
     Dates: end: 201811
  2. DUPILUMAB [Suspect]
     Active Substance: DUPILUMAB
     Indication: DERMATITIS ATOPIC
     Dosage: 600 MG, QD
     Route: 058
     Dates: start: 20181001

REACTIONS (9)
  - Vision blurred [Unknown]
  - Retinal disorder [Not Recovered/Not Resolved]
  - Feeling abnormal [Unknown]
  - Visual impairment [Not Recovered/Not Resolved]
  - Atypical pneumonia [Unknown]
  - Pruritus [Unknown]
  - Cystitis [Unknown]
  - Bronchitis [Unknown]
  - Eczema [Not Recovered/Not Resolved]
